FAERS Safety Report 13415650 (Version 2)
Quarter: 2017Q2

REPORT INFORMATION
  Report Type: Spontaneous
  Country: JP (occurrence: JP)
  Receive Date: 20170407
  Receipt Date: 20170620
  Transmission Date: 20170830
  Serious: Yes (Hospitalization, Other)
  Sender: FDA-Public Use
  Company Number: JP-GILEAD-2017-0265561

PATIENT
  Age: 68 Year
  Sex: Female

DRUGS (3)
  1. VIVIANT [Concomitant]
     Active Substance: BAZEDOXIFENE
  2. NITRAZEPAM [Concomitant]
     Active Substance: NITRAZEPAM
  3. HARVONI [Suspect]
     Active Substance: LEDIPASVIR\SOFOSBUVIR
     Indication: HEPATITIS C
     Dosage: 1 DF, QD
     Route: 048
     Dates: start: 20170112, end: 20170220

REACTIONS (1)
  - Cerebral haemorrhage [Unknown]

NARRATIVE: CASE EVENT DATE: 20170220
